FAERS Safety Report 5262510-7 (Version None)
Quarter: 2007Q1

REPORT INFORMATION
  Report Type: 
  Country: None (occurrence: None)
  Receive Date: 20070312
  Receipt Date: 20070305
  Transmission Date: 20070707
  Serious: Yes (Other)
  Sender: FDA-Public Use
  Company Number: US-AVENTIS-200616389US

PATIENT
  Sex: Female
  Weight: 29 kg

DRUGS (1)
  1. DDAVP [Suspect]
     Route: 048
     Dates: start: 20060701, end: 20060801

REACTIONS (1)
  - CONVULSION [None]
